FAERS Safety Report 9016601 (Version 2)
Quarter: 2013Q1

REPORT INFORMATION
  Report Type: Spontaneous
  Country: US (occurrence: US)
  Receive Date: 20130117
  Receipt Date: 20130305
  Transmission Date: 20140127
  Serious: No
  Sender: FDA-Public Use
  Company Number: US-BIOGENIDEC-2013BI003508

PATIENT
  Age: 54 Year
  Sex: Female

DRUGS (3)
  1. TYSABRI [Suspect]
     Indication: MULTIPLE SCLEROSIS
     Route: 042
     Dates: start: 20121017
  2. NEURONTIN [Concomitant]
     Indication: NEURALGIA
  3. PRIMIDONE [Concomitant]
     Indication: TREMOR

REACTIONS (3)
  - Fear [Recovered/Resolved]
  - Blood pressure increased [Unknown]
  - Infusion related reaction [Recovered/Resolved]
